FAERS Safety Report 13103711 (Version 2)
Quarter: 2017Q1

REPORT INFORMATION
  Report Type: Spontaneous
  Country: US (occurrence: US)
  Receive Date: 20170111
  Receipt Date: 20170206
  Transmission Date: 20170428
  Serious: No
  Sender: FDA-Public Use
  Company Number: US-BEH-2017076768

PATIENT
  Sex: Female
  Weight: 102.1 kg

DRUGS (54)
  1. HIZENTRA [Suspect]
     Active Substance: HUMAN IMMUNOGLOBULIN G
     Indication: IMMUNODEFICIENCY COMMON VARIABLE
     Route: 058
  2. LOSARTAN. [Concomitant]
     Active Substance: LOSARTAN
  3. LIPITOR [Concomitant]
     Active Substance: ATORVASTATIN CALCIUM
  4. RIZATRIPTAN. [Concomitant]
     Active Substance: RIZATRIPTAN
  5. SYMBICORT [Concomitant]
     Active Substance: BUDESONIDE\FORMOTEROL FUMARATE DIHYDRATE
  6. XARELTO [Concomitant]
     Active Substance: RIVAROXABAN
  7. BENADRYL [Concomitant]
     Active Substance: DIPHENHYDRAMINE HYDROCHLORIDE
  8. ZOCOR [Concomitant]
     Active Substance: SIMVASTATIN
  9. HIZENTRA [Suspect]
     Active Substance: HUMAN IMMUNOGLOBULIN G
     Dosage: 10 G, QW
     Route: 058
     Dates: start: 20141212
  10. MIRAPEX [Concomitant]
     Active Substance: PRAMIPEXOLE DIHYDROCHLORIDE
  11. TEA, GREEN [Concomitant]
     Active Substance: GREEN TEA LEAF
  12. TYLENOL [Concomitant]
     Active Substance: ACETAMINOPHEN
  13. CHAMOMILE                          /00512601/ [Concomitant]
  14. NIGHTTIME SLEEP AID (DOXYLAMINE SUCCINATE) [Concomitant]
     Active Substance: DOXYLAMINE SUCCINATE
  15. LISINOPRIL. [Concomitant]
     Active Substance: LISINOPRIL
  16. MUCINEX [Concomitant]
     Active Substance: GUAIFENESIN
  17. XANAX [Concomitant]
     Active Substance: ALPRAZOLAM
  18. COUMADIN [Concomitant]
     Active Substance: WARFARIN SODIUM
  19. PERCOCET                           /00446701/ [Concomitant]
     Active Substance: ACETAMINOPHEN\OXYCODONE HYDROCHLORIDE\OXYCODONE TEREPHTHALATE
  20. BENEFIBER                          /00677201/ [Concomitant]
     Active Substance: ICODEXTRIN
  21. AMITIZA [Concomitant]
     Active Substance: LUBIPROSTONE
  22. CYMBALTA [Concomitant]
     Active Substance: DULOXETINE HYDROCHLORIDE
  23. TRAMADOL. [Concomitant]
     Active Substance: TRAMADOL
  24. LINZESS [Concomitant]
     Active Substance: LINACLOTIDE
  25. HYDROXYZINE [Concomitant]
     Active Substance: HYDROXYZINE HYDROCHLORIDE
  26. PROAIR HFA [Concomitant]
     Active Substance: ALBUTEROL SULFATE
  27. COLACE [Concomitant]
     Active Substance: DOCUSATE SODIUM
  28. SYMBICORT [Concomitant]
     Active Substance: BUDESONIDE\FORMOTEROL FUMARATE DIHYDRATE
  29. PREDNISONE. [Concomitant]
     Active Substance: PREDNISONE
  30. VIBRAMYCIN [Concomitant]
     Active Substance: DOXYCYCLINE
  31. RESTORIL [Concomitant]
     Active Substance: TEMAZEPAM
  32. LASIX [Concomitant]
     Active Substance: FUROSEMIDE
  33. AMBIEN [Concomitant]
     Active Substance: ZOLPIDEM TARTRATE
  34. SINGULAIR [Concomitant]
     Active Substance: MONTELUKAST SODIUM
  35. VITAMIN D                          /00107901/ [Concomitant]
     Active Substance: ERGOCALCIFEROL
  36. PANTOPRAZOLE [Concomitant]
     Active Substance: PANTOPRAZOLE SODIUM
  37. MULTIVITAMIN                       /00097801/ [Concomitant]
     Active Substance: VITAMINS
  38. DOXYCYCLINE. [Concomitant]
     Active Substance: DOXYCYCLINE
  39. AMOXICILLIN. [Concomitant]
     Active Substance: AMOXICILLIN
  40. HIZENTRA [Suspect]
     Active Substance: HUMAN IMMUNOGLOBULIN G
     Dosage: UNK
     Route: 058
  41. TUSSIONEX                          /00004701/ [Concomitant]
     Active Substance: BROMHEXINE
  42. FLONASE [Concomitant]
     Active Substance: FLUTICASONE PROPIONATE
  43. FEXOFENADINE [Concomitant]
     Active Substance: FEXOFENADINE\FEXOFENADINE HYDROCHLORIDE
  44. LEVALBUTEROL. [Concomitant]
     Active Substance: LEVALBUTEROL
  45. GABAPENTIN. [Concomitant]
     Active Substance: GABAPENTIN
  46. CALCIUM [Concomitant]
     Active Substance: CALCIUM
  47. XOPENEX [Concomitant]
     Active Substance: LEVALBUTEROL HYDROCHLORIDE
  48. POTASSIUM [Concomitant]
     Active Substance: POTASSIUM
  49. EPIPEN [Concomitant]
     Active Substance: EPINEPHRINE
  50. CEFUROXIME. [Concomitant]
     Active Substance: CEFUROXIME
  51. VALTREX [Concomitant]
     Active Substance: VALACYCLOVIR HYDROCHLORIDE
  52. CARDIZEM [Concomitant]
     Active Substance: DILTIAZEM HYDROCHLORIDE
  53. VICODIN [Concomitant]
     Active Substance: ACETAMINOPHEN\HYDROCODONE BITARTRATE
  54. ALENDRONATE [Concomitant]
     Active Substance: ALENDRONATE SODIUM

REACTIONS (1)
  - Blood pressure increased [Unknown]
